FAERS Safety Report 7665124-4 (Version None)
Quarter: 2011Q3

REPORT INFORMATION
  Report Type: 
  Country: None (occurrence: None)
  Receive Date: 20110806
  Receipt Date: 20110502
  Transmission Date: 20111222
  Serious: No
  Sender: FDA-Public Use
  Company Number: US-ABBOTT-11P-163-0722911-00

PATIENT
  Sex: Female
  Weight: 91.254 kg

DRUGS (3)
  1. NIASPAN [Suspect]
     Indication: HIGH DENSITY LIPOPROTEIN DECREASED
     Dosage: AT BEDTIME
     Dates: start: 20110428
  2. NIASPAN [Suspect]
     Indication: LOW DENSITY LIPOPROTEIN INCREASED
  3. ASPIRIN [Concomitant]
     Indication: PRODUCT USED FOR UNKNOWN INDICATION
     Dosage: 2 AT BEDTIME

REACTIONS (7)
  - PARAESTHESIA [None]
  - FEELING HOT [None]
  - ASTHENIA [None]
  - ERYTHEMA [None]
  - SWELLING FACE [None]
  - DIZZINESS [None]
  - FACIAL PAIN [None]
